FAERS Safety Report 8165512-6 (Version None)
Quarter: 2012Q1

REPORT INFORMATION
  Report Type: 
  Country: None (occurrence: None)
  Receive Date: 20120227
  Receipt Date: 20120215
  Transmission Date: 20120608
  Serious: Yes (Hospitalization, Other)
  Sender: FDA-Public Use
  Company Number: US-BAYER-2012-016984

PATIENT
  Age: 28 Year
  Sex: Female

DRUGS (5)
  1. YASMIN [Suspect]
     Dosage: UNK
     Dates: end: 20110613
  2. DROSPIRENONE AND ETHINYL ESTRADIOL [Suspect]
     Dosage: UNK
     Dates: end: 20110608
  3. ADVAIR DISKUS 100/50 [Concomitant]
     Dosage: 1 PUFF(S), UNK
  4. IBUPROFEN (ADVIL) [Concomitant]
     Indication: CHEST PAIN
  5. ALBUTEROL [Concomitant]
     Indication: CHEST PAIN
     Route: 055

REACTIONS (2)
  - PULMONARY INFARCTION [None]
  - PULMONARY EMBOLISM [None]
